FAERS Safety Report 5012414-X (Version None)
Quarter: 2006Q2

REPORT INFORMATION
  Report Type: 
  Country: None (occurrence: None)
  Receive Date: 20060411
  Receipt Date: 20060117
  Transmission Date: 20061013
  Serious: No
  Sender: FDA-Public Use
  Company Number: 2005S1000262

PATIENT
  Age: 74 Year
  Sex: Female
  Weight: 80 kg

DRUGS (19)
  1. CUBICIN [Suspect]
     Indication: DEVICE RELATED INFECTION
     Dosage: 4 MG/KG;Q4BH;IV
     Route: 042
     Dates: start: 20051101, end: 20051101
  2. CUBICIN [Suspect]
     Indication: PACEMAKER COMPLICATION
     Dosage: 4 MG/KG;Q4BH;IV
     Route: 042
     Dates: start: 20051101, end: 20051101
  3. CUBICIN [Suspect]
     Indication: STAPHYLOCOCCAL SEPSIS
     Dosage: 4 MG/KG;Q4BH;IV
     Route: 042
     Dates: start: 20051101, end: 20051101
  4. VANCOMYCIN [Concomitant]
  5. VENTOLIN [Concomitant]
  6. ADVAIR DISKUS 100/50 [Concomitant]
  7. ASPIRIN [Concomitant]
  8. DITROPAN [Concomitant]
  9. NITROGLYCERIN [Concomitant]
  10. EZETIMIBE [Concomitant]
  11. TRICOR [Concomitant]
  12. IMDUR [Concomitant]
  13. SYNTHROID [Concomitant]
  14. LIDODERM [Concomitant]
  15. GUAIFENESIN [Concomitant]
  16. ATROVENT [Concomitant]
  17. FLEXERIL [Concomitant]
  18. NEURONTIN [Concomitant]
  19. CLARITIN [Concomitant]

REACTIONS (3)
  - ASTHENIA [None]
  - BLOOD CREATINE PHOSPHOKINASE INCREASED [None]
  - FATIGUE [None]
